FAERS Safety Report 22197435 (Version 4)
Quarter: 2024Q1

REPORT INFORMATION
  Report Type: Spontaneous
  Country: US (occurrence: US)
  Receive Date: 20230411
  Receipt Date: 20240208
  Transmission Date: 20240410
  Serious: Yes (Life-Threatening, Hospitalization, Other)
  Sender: FDA-Public Use
  Company Number: US-BRISTOL-MYERS SQUIBB COMPANY-2023-050370

PATIENT
  Age: 64 Year
  Sex: Male

DRUGS (2)
  1. INREBIC [Suspect]
     Active Substance: FEDRATINIB HYDROCHLORIDE
     Indication: Myelofibrosis
     Dosage: DOSE : 3 CAPSULES;     FREQ : DAILY?STRENGTH AND PRESENTATION OF THE AE : 100MG CAPSULES?DAYS OF SUP
     Route: 048
  2. MAG [PANTOPRAZOLE SODIUM SESQUIHYDRATE] [Concomitant]

REACTIONS (1)
  - Urosepsis [Recovered/Resolved]

NARRATIVE: CASE EVENT DATE: 20230717
